FAERS Safety Report 13031750 (Version 1)
Quarter: 2016Q4

REPORT INFORMATION
  Report Type: Spontaneous
  Country: US (occurrence: US)
  Receive Date: 20161215
  Receipt Date: 20161215
  Transmission Date: 20170207
  Serious: Yes (Other)
  Sender: FDA-Public Use
  Company Number: US-ENDO PHARMACEUTICALS INC.-2016-006864

PATIENT
  Sex: Female

DRUGS (3)
  1. XELJANZ [Concomitant]
     Active Substance: TOFACITINIB CITRATE
     Indication: RHEUMATOID ARTHRITIS
     Route: 065
     Dates: start: 2016
  2. RHEUMATREX [Suspect]
     Active Substance: METHOTREXATE SODIUM
     Route: 048
  3. RHEUMATREX [Suspect]
     Active Substance: METHOTREXATE SODIUM
     Indication: RHEUMATOID ARTHRITIS
     Route: 048
     Dates: start: 2006

REACTIONS (6)
  - Rheumatoid arthritis [Unknown]
  - Alopecia [Unknown]
  - Drug effect decreased [Unknown]
  - Rheumatoid nodule [Not Recovered/Not Resolved]
  - Nail disorder [Unknown]
  - Hair disorder [Unknown]
